FAERS Safety Report 7206491-5 (Version None)
Quarter: 2010Q4

REPORT INFORMATION
  Report Type: 
  Country: None (occurrence: None)
  Receive Date: 20101217
  Receipt Date: 20101203
  Transmission Date: 20110411
  Serious: Yes (Hospitalization)
  Sender: FDA-Public Use
  Company Number: 2010S1001014

PATIENT
  Age: 68 Year
  Sex: Male

DRUGS (1)
  1. LIVALO [Suspect]
     Indication: HYPERLIPIDAEMIA
     Dosage: 2 MG; 1X; PO
     Route: 048
     Dates: start: 20070920

REACTIONS (2)
  - CEREBRAL INFARCTION [None]
  - CONVULSION [None]
